FAERS Safety Report 8186963-X (Version None)
Quarter: 2012Q1

REPORT INFORMATION
  Report Type: 
  Country: None (occurrence: None)
  Receive Date: 20120306
  Receipt Date: 20120302
  Transmission Date: 20120608
  Serious: Yes (Other)
  Sender: FDA-Public Use
  Company Number: US-PFIZER INC-2012057038

PATIENT
  Sex: Female
  Weight: 92.971 kg

DRUGS (2)
  1. ARTHROTEC [Suspect]
     Indication: LIGAMENT SPRAIN
     Dosage: 75 MG, 2X/DAY
     Dates: start: 20110601
  2. ARTHROTEC [Suspect]
     Dosage: 75 MG, DAILY
     Dates: end: 20120101

REACTIONS (5)
  - ABDOMINAL PAIN UPPER [None]
  - DRUG ADMINISTRATION ERROR [None]
  - ASTHMA [None]
  - MITRAL VALVE PROLAPSE [None]
  - CHOLELITHIASIS [None]
